FAERS Safety Report 11719652 (Version 1)
Quarter: 2015Q4

REPORT INFORMATION
  Report Type: Spontaneous
  Country: US (occurrence: US)
  Receive Date: 20151110
  Receipt Date: 20151110
  Transmission Date: 20160304
  Serious: No
  Sender: FDA-Public Use
  Company Number: US-MISSION PHARMACAL COMPANY-1043988

PATIENT
  Age: 63 Year
  Sex: Male

DRUGS (1)
  1. THIOLA [Suspect]
     Active Substance: TIOPRONIN
     Route: 048
     Dates: start: 20150301

REACTIONS (3)
  - Nausea [Unknown]
  - Skin wrinkling [Unknown]
  - Urticaria [Unknown]

NARRATIVE: CASE EVENT DATE: 20150301
